FAERS Safety Report 8368206-7 (Version None)
Quarter: 2012Q2

REPORT INFORMATION
  Report Type: 
  Country: None (occurrence: None)
  Receive Date: 20120517
  Receipt Date: 20120508
  Transmission Date: 20120825
  Serious: No
  Sender: FDA-Public Use
  Company Number: US-ALLERGAN-1204060US

PATIENT
  Sex: Female

DRUGS (3)
  1. LUMIGAN [Suspect]
     Indication: INTRAOCULAR PRESSURE INCREASED
     Dosage: 1 GTT, QHS
     Route: 047
     Dates: start: 20110301
  2. LUMIGAN [Suspect]
     Indication: RETINAL OPERATION
     Dosage: UNK
     Route: 047
     Dates: start: 20110101
  3. LUMIGAN [Suspect]
     Dosage: UNK
     Route: 047
     Dates: start: 20120101, end: 20120301

REACTIONS (3)
  - SWELLING FACE [None]
  - SKIN HYPERPIGMENTATION [None]
  - EYELASH THICKENING [None]
